FAERS Safety Report 23769039 (Version 1)
Quarter: 2024Q2

REPORT INFORMATION
  Report Type: Spontaneous
  Country: SE (occurrence: SE)
  Receive Date: 20240422
  Receipt Date: 20240422
  Transmission Date: 20240716
  Serious: Yes (Death, Hospitalization, Other)
  Sender: FDA-Public Use
  Company Number: None

PATIENT
  Age: 76 Year
  Sex: Male

DRUGS (1)
  1. ELIQUIS [Suspect]
     Active Substance: APIXABAN
     Indication: Atrial fibrillation

REACTIONS (4)
  - Fall [Fatal]
  - Subdural haematoma [Fatal]
  - Hip fracture [Fatal]
  - Pneumonia [Fatal]

NARRATIVE: CASE EVENT DATE: 20240201
